FAERS Safety Report 20734355 (Version 1)
Quarter: 2022Q2

REPORT INFORMATION
  Report Type: Spontaneous
  Country: US (occurrence: US)
  Receive Date: 20220421
  Receipt Date: 20220421
  Transmission Date: 20220721
  Serious: Yes (Hospitalization, Other)
  Sender: FDA-Public Use
  Company Number: US-TERSERA THERAPEUTICS LLC-2022TRS001560

PATIENT

DRUGS (2)
  1. PRIALT [Suspect]
     Active Substance: ZICONOTIDE ACETATE
     Indication: Back pain
     Dosage: 0.096 MCG, QD (CONCENTRATION: 2 MCG/ML)
     Route: 037
  2. PRIALT [Suspect]
     Active Substance: ZICONOTIDE ACETATE
     Indication: Pain

REACTIONS (1)
  - Pseudomonas aeruginosa meningitis [Not Recovered/Not Resolved]
